FAERS Safety Report 13581295 (Version 9)
Quarter: 2017Q2

REPORT INFORMATION
  Report Type: Spontaneous
  Country: IT (occurrence: IT)
  Receive Date: 20170525
  Receipt Date: 20170623
  Transmission Date: 20170830
  Serious: Yes (Hospitalization, Other)
  Sender: FDA-Public Use
  Company Number: IT-PFIZER INC-2017218144

PATIENT
  Age: 75 Year
  Sex: Male
  Weight: 75 kg

DRUGS (14)
  1. XARELTO [Interacting]
     Active Substance: RIVAROXABAN
     Indication: ATRIAL FIBRILLATION
     Dosage: 20 MG, DAILY
     Route: 048
     Dates: start: 20150224
  2. LANTUS [Concomitant]
     Active Substance: INSULIN GLARGINE
     Indication: BLOOD INSULIN
  3. TAMSULOSIN TEVA [Concomitant]
     Active Substance: TAMSULOSIN
     Indication: BENIGN PROSTATIC HYPERPLASIA
     Dosage: 0.4 MG, UNK
     Route: 048
  4. VENITRIN [Concomitant]
     Active Substance: NITROGLYCERIN
     Indication: ANGINA PECTORIS
     Dosage: 10 MG, UNK
     Route: 062
  5. KANRENOL [Interacting]
     Active Substance: CANRENOATE POTASSIUM
     Indication: DIURETIC THERAPY
     Dosage: 25 MG, DAILY
     Route: 048
  6. LANTUS [Concomitant]
     Active Substance: INSULIN GLARGINE
     Indication: DIABETES MELLITUS
     Dosage: 10 DF, UNK
     Route: 058
  7. HUMALOG PEN [Concomitant]
     Active Substance: INSULIN LISPRO
     Indication: DIABETES MELLITUS
     Dosage: 18 DF, UNK
     Route: 058
  8. HUMALOG [Concomitant]
     Active Substance: INSULIN LISPRO
     Indication: DIABETES MELLITUS
     Dosage: 18 DF, UNK
     Route: 058
  9. XARELTO [Interacting]
     Active Substance: RIVAROXABAN
     Dosage: 15 MG, DAILY
     Route: 048
     Dates: start: 20170421
  10. LASIX [Concomitant]
     Active Substance: FUROSEMIDE
     Indication: DIURETIC THERAPY
     Dosage: 100 MG, UNK
     Route: 048
  11. TORVAST [Concomitant]
     Active Substance: ATORVASTATIN
     Indication: HYPERCHOLESTEROLAEMIA
     Dosage: 40 MG, UNK
     Route: 048
  12. LOBIVON [Concomitant]
     Active Substance: NEBIVOLOL HYDROCHLORIDE
     Indication: HYPERTENSION
     Dosage: 2.5 MG, UNK
     Route: 048
  13. RAMIPRIL. [Suspect]
     Active Substance: RAMIPRIL
     Indication: HYPERTENSION
     Dosage: 10 MG, DAILY
     Route: 048
  14. RANEXA [Concomitant]
     Active Substance: RANOLAZINE
     Indication: ATRIAL FIBRILLATION
     Dosage: 750 MG, UNK
     Route: 048

REACTIONS (6)
  - Drug interaction [Recovered/Resolved]
  - Acute kidney injury [Recovering/Resolving]
  - Cardiac failure [Not Recovered/Not Resolved]
  - Pyrexia [Recovered/Resolved]
  - Pneumonia [Not Recovered/Not Resolved]
  - Blood creatinine increased [Recovered/Resolved]

NARRATIVE: CASE EVENT DATE: 201701
